FAERS Safety Report 10813810 (Version 2)
Quarter: 2015Q1

REPORT INFORMATION
  Report Type: Spontaneous
  Country: US (occurrence: US)
  Receive Date: 20150218
  Receipt Date: 20150218
  Transmission Date: 20150721
  Serious: Yes (Death, Hospitalization, Other)
  Sender: FDA-Public Use
  Company Number: US-TARO PHARMACEUTICALS U.S.A., INC-2015SUN00456

PATIENT
  Age: 7 Year
  Sex: Male

DRUGS (10)
  1. IBUPROFEN. [Concomitant]
     Active Substance: IBUPROFEN
     Indication: PYREXIA
     Dosage: 2 DF, ADMINISTERED ON DAY 5
  2. ONDANSETRON [Concomitant]
     Active Substance: ONDANSETRON
     Dosage: UNK
     Route: 065
  3. ACETAMINOPHEN. [Interacting]
     Active Substance: ACETAMINOPHEN
     Dosage: 15 MG/KG, BEGINNING WITH SECOND DOSE
  4. ACETAMINOPHEN. [Suspect]
     Active Substance: ACETAMINOPHEN
     Indication: PYREXIA
     Dosage: 10 MG/KG, EVERY 4 HOURS WAS INITIATED
     Route: 065
  5. MEROPENEM. [Concomitant]
     Active Substance: MEROPENEM
  6. METRONIDAZOLE. [Concomitant]
     Active Substance: METRONIDAZOLE
  7. FENRETINIDE [Interacting]
     Active Substance: FENRETINIDE
     Indication: NEUROBLASTOMA
     Dosage: 1110 MG/M2/DAY, AS A CONTINUOUS INFUSION FOR 120 HOURS
     Route: 042
     Dates: start: 201002
  8. CEFTRIAXONE. [Interacting]
     Active Substance: CEFTRIAXONE
     Indication: BACTERAEMIA
     Dosage: UNK
     Route: 042
  9. MONTELUKAST [Concomitant]
     Active Substance: MONTELUKAST SODIUM
     Dosage: UNK
     Route: 065
  10. VANCOMYCIN [Concomitant]
     Active Substance: VANCOMYCIN

REACTIONS (6)
  - Chemotherapeutic drug level increased [Fatal]
  - Drug interaction [Fatal]
  - Toxicity to various agents [Fatal]
  - Multi-organ disorder [Fatal]
  - Acute hepatic failure [Fatal]
  - Rash macular [Not Recovered/Not Resolved]
